FAERS Safety Report 6346632-5 (Version None)
Quarter: 2009Q3

REPORT INFORMATION
  Report Type: 
  Country: None (occurrence: None)
  Receive Date: 20090901
  Receipt Date: 20090825
  Transmission Date: 20100115
  Serious: Yes (Other)
  Sender: FDA-Public Use
  Company Number: WAES 0908USA01670

PATIENT
  Age: 66 Year
  Sex: Male

DRUGS (5)
  1. PEPCID RPD [Suspect]
     Indication: GASTRITIS
     Dosage: 20 MG/DAILY PO
     Route: 048
     Dates: start: 20090610, end: 20090727
  2. ATELEC [Concomitant]
  3. CARDENALIN [Concomitant]
  4. ZYLORIC [Concomitant]
  5. LOSARTAN POTASSIUM [Concomitant]

REACTIONS (2)
  - GASTRIC CANCER [None]
  - GASTRIC ULCER [None]
